FAERS Safety Report 9806160 (Version 1)
Quarter: 2014Q1

REPORT INFORMATION
  Report Type: Spontaneous
  Country: US (occurrence: US)
  Receive Date: 20140109
  Receipt Date: 20140109
  Transmission Date: 20141002
  Serious: No
  Sender: FDA-Public Use
  Company Number: US-PFIZER INC-2014006276

PATIENT
  Age: 85 Year
  Sex: Male

DRUGS (18)
  1. ATORVASTATIN CALCIUM [Suspect]
  2. ELIQUIS [Concomitant]
     Indication: ATRIAL FIBRILLATION
     Dosage: 5 MG, 2X/DAY
     Route: 048
     Dates: start: 20130320
  3. ELIQUIS [Concomitant]
     Dosage: 2.5 MG, 2X/DAY
     Route: 048
     Dates: start: 20130328, end: 20130328
  4. LEVOTHYROXINE [Concomitant]
     Dosage: 0.075 MG, UNK
  5. ISOSORBIDE DINITRATE [Concomitant]
     Dosage: 30 MG, UNK
  6. NEXIUM [Concomitant]
     Dosage: 20 MG, UNK
  7. NEXIUM [Concomitant]
     Dosage: 40MG DAILY
  8. HCTZ [Concomitant]
     Dosage: 25 MG, 1X/DAY
  9. LIPITOR [Concomitant]
     Dosage: 10 MG, UNK
  10. PROSCAR [Concomitant]
     Dosage: 5 MG, UNK
  11. FLOMAX [Concomitant]
     Dosage: 0.4 MG, 1X/DAY
  12. FISH OIL [Concomitant]
     Dosage: 1000 MG, UNK
  13. CALCIUM CITRATE [Concomitant]
     Dosage: 630 MG, UNK
  14. CENTRUM SILVER [Concomitant]
     Dosage: UNK
  15. COLACE [Concomitant]
     Dosage: 100 MG, UNK
  16. BENEFIBER [Concomitant]
     Dosage: UNK
  17. COQ10 [Concomitant]
     Dosage: 1000 MG, UNK
  18. ASPIRIN [Concomitant]
     Dosage: 81 MG, 1X/DAY

REACTIONS (1)
  - Muscular weakness [Unknown]
